FAERS Safety Report 20061981 (Version 1)
Quarter: 2021Q4

REPORT INFORMATION
  Report Type: Spontaneous
  Country: US (occurrence: None)
  Receive Date: 20211112
  Receipt Date: 20211112
  Transmission Date: 20220303
  Serious: Yes (Other)
  Sender: FDA-Public Use
  Company Number: US-ROCHE-2949214

PATIENT
  Sex: Female
  Weight: 49.486 kg

DRUGS (2)
  1. OCREVUS [Suspect]
     Active Substance: OCRELIZUMAB
     Indication: Multiple sclerosis
     Dosage: YES
     Route: 065
     Dates: start: 2019
  2. CLOBETASOL [Concomitant]
     Active Substance: CLOBETASOL
     Dosage: APPLIED TO SCALP
     Route: 065
     Dates: start: 202108

REACTIONS (4)
  - Infection [Not Recovered/Not Resolved]
  - Psoriasis [Recovering/Resolving]
  - Alopecia [Not Recovered/Not Resolved]
  - Urinary tract infection [Recovered/Resolved]

NARRATIVE: CASE EVENT DATE: 20200101
